FAERS Safety Report 19363403 (Version 3)
Quarter: 2021Q4

REPORT INFORMATION
  Report Type: Report from Study
  Country: KR (occurrence: KR)
  Receive Date: 20210603
  Receipt Date: 20211101
  Transmission Date: 20220304
  Serious: Yes (Other)
  Sender: FDA-Public Use
  Company Number: KR-KYOWAKIRIN-2021AKK009314

PATIENT
  Age: 63 Year
  Sex: Male

DRUGS (37)
  1. FILGRASTIM [Suspect]
     Active Substance: FILGRASTIM
     Indication: Product used for unknown indication
     Dosage: 300 UNK
     Route: 065
     Dates: start: 20140305, end: 20140616
  2. DECITABINE [Concomitant]
     Active Substance: DECITABINE
     Indication: Product used for unknown indication
     Dosage: 20 MG/M2
     Route: 042
     Dates: start: 20140223, end: 20140223
  3. DECITABINE [Concomitant]
     Active Substance: DECITABINE
     Dosage: 20 MG/M2
     Route: 042
     Dates: start: 20140224, end: 20140224
  4. DECITABINE [Concomitant]
     Active Substance: DECITABINE
     Dosage: 20 MG/M2
     Route: 042
     Dates: start: 20140225, end: 20140225
  5. DECITABINE [Concomitant]
     Active Substance: DECITABINE
     Dosage: 20 MG/M2
     Route: 042
     Dates: start: 20140226, end: 20140226
  6. DECITABINE [Concomitant]
     Active Substance: DECITABINE
     Dosage: 20 MG/M2
     Route: 042
     Dates: start: 20140227, end: 20140227
  7. DECITABINE [Concomitant]
     Active Substance: DECITABINE
     Dosage: 20 MG/M2
     Route: 042
     Dates: start: 20140328, end: 20140328
  8. DECITABINE [Concomitant]
     Active Substance: DECITABINE
     Dosage: 20 MG/M2
     Route: 042
     Dates: start: 20140329, end: 20140329
  9. DECITABINE [Concomitant]
     Active Substance: DECITABINE
     Dosage: 20 MG/M2
     Route: 042
     Dates: start: 20140330, end: 20140330
  10. DECITABINE [Concomitant]
     Active Substance: DECITABINE
     Dosage: 20 MG/M2
     Route: 042
     Dates: start: 20140331, end: 20140331
  11. DECITABINE [Concomitant]
     Active Substance: DECITABINE
     Dosage: 20 MG/M2
     Dates: start: 20140401, end: 20140401
  12. DECITABINE [Concomitant]
     Active Substance: DECITABINE
     Dosage: 20 MG/M2
     Route: 042
     Dates: start: 20140428, end: 20140428
  13. DECITABINE [Concomitant]
     Active Substance: DECITABINE
     Dosage: 20 MG/M2
     Route: 042
     Dates: start: 20140429, end: 20140429
  14. DECITABINE [Concomitant]
     Active Substance: DECITABINE
     Dosage: 20 MG/M2
     Route: 042
     Dates: start: 20140430, end: 20140430
  15. DECITABINE [Concomitant]
     Active Substance: DECITABINE
     Dosage: 20 MG/M2
     Route: 042
     Dates: start: 20140501, end: 20140501
  16. DECITABINE [Concomitant]
     Active Substance: DECITABINE
     Dosage: 20 MG/M2
     Route: 042
     Dates: start: 20140502, end: 20140502
  17. ALPRAZOLAM [Concomitant]
     Active Substance: ALPRAZOLAM
     Indication: Product used for unknown indication
     Dosage: 0.5 DF
  18. AMBROXOL [Concomitant]
     Active Substance: AMBROXOL
     Indication: Product used for unknown indication
     Dosage: 1 DF
     Dates: start: 20140512, end: 20140519
  19. BISACODYL [Concomitant]
     Active Substance: BISACODYL
     Indication: Product used for unknown indication
     Dosage: 1 DF
     Dates: start: 20140320, end: 20140320
  20. CEFTAZIDIME [Concomitant]
     Active Substance: CEFTAZIDIME
     Indication: Product used for unknown indication
     Dosage: 2 UNK
     Dates: start: 20140320
  21. CODEINE [Concomitant]
     Active Substance: CODEINE
     Indication: Product used for unknown indication
     Dosage: 1 UNK
     Dates: start: 20140322, end: 20140322
  22. FAMOTIDINE [Concomitant]
     Active Substance: FAMOTIDINE
     Indication: Product used for unknown indication
     Dosage: 1 UNK
     Dates: start: 20140318, end: 20140318
  23. HYDROMORPHONE [Concomitant]
     Active Substance: HYDROMORPHONE
     Indication: Product used for unknown indication
     Dosage: 1 DF
     Dates: start: 20140323, end: 20140324
  24. LACTULOSE [Concomitant]
     Active Substance: LACTULOSE
     Indication: Product used for unknown indication
     Dosage: 1 UNK
     Dates: start: 20140324, end: 20140324
  25. LACTULOSE [Concomitant]
     Active Substance: LACTULOSE
     Dosage: 2 UNK
     Dates: start: 20140325, end: 20140325
  26. LENOGRASTIM [Concomitant]
     Active Substance: LENOGRASTIM
     Indication: Product used for unknown indication
     Dosage: 250 UNK
     Dates: start: 20140325, end: 20140606
  27. LEVOFLOXACIN [Concomitant]
     Active Substance: LEVOFLOXACIN
     Indication: Product used for unknown indication
     Dosage: 500 UNK
     Dates: start: 20140221, end: 20140305
  28. LEVOFLOXACIN [Concomitant]
     Active Substance: LEVOFLOXACIN
     Dosage: 500 MG
     Dates: start: 20140408, end: 20140617
  29. MAGNESIUM OXIDE [Concomitant]
     Active Substance: MAGNESIUM OXIDE
     Indication: Product used for unknown indication
     Dosage: 1000 MG
     Dates: start: 20140320, end: 20140329
  30. METRONIDAZOLE [Concomitant]
     Active Substance: METRONIDAZOLE
     Indication: Product used for unknown indication
     Dosage: 1 DF
     Dates: start: 20140320, end: 20140329
  31. MORPHINE [Concomitant]
     Active Substance: MORPHINE
     Indication: Product used for unknown indication
     Dosage: 2 UNK
     Dates: start: 20140324, end: 20140326
  32. OXYCODONE [Concomitant]
     Active Substance: OXYCODONE
     Indication: Product used for unknown indication
     Dosage: 1 DF
     Dates: start: 20140324, end: 20140324
  33. OXYCODONE/NALOXONE RATIOPHARM [Concomitant]
     Indication: Product used for unknown indication
     Dosage: 1 DF
     Dates: start: 20140326, end: 20140329
  34. PROPACETAMOL [Concomitant]
     Active Substance: PROPACETAMOL
     Indication: Product used for unknown indication
     Dosage: 1 UNK
     Dates: start: 20140318, end: 20140320
  35. PROPRANOLOL [Concomitant]
     Active Substance: PROPRANOLOL HYDROCHLORIDE
     Indication: Product used for unknown indication
     Dosage: 10 MG
  36. PSEUDOEPHEDRINE [Concomitant]
     Active Substance: PSEUDOEPHEDRINE
     Indication: Product used for unknown indication
     Dosage: 1 DF
     Dates: start: 20140512, end: 20140519
  37. TRAMADOL [Concomitant]
     Active Substance: TRAMADOL
     Indication: Product used for unknown indication
     Dosage: 1 UNK
     Dates: start: 20140318, end: 20140322

REACTIONS (10)
  - Neutropenia [Recovered/Resolved]
  - Neutropenia [Recovered/Resolved]
  - Interstitial lung disease [Not Recovered/Not Resolved]
  - Pain [Recovered/Resolved]
  - Constipation [Recovered/Resolved]
  - Upper respiratory tract infection [Recovered/Resolved]
  - Spleen disorder [Not Recovered/Not Resolved]
  - Headache [Recovered/Resolved]
  - Nausea [Recovered/Resolved]
  - Asthenia [Not Recovered/Not Resolved]

NARRATIVE: CASE EVENT DATE: 20140305
